FAERS Safety Report 8233132-0 (Version None)
Quarter: 2012Q1

REPORT INFORMATION
  Report Type: 
  Country: None (occurrence: None)
  Receive Date: 20120326
  Receipt Date: 20120319
  Transmission Date: 20120608
  Serious: Yes (Other)
  Sender: FDA-Public Use
  Company Number: JP-VERTEX PHARMACEUTICALS INC.-AE-2012-003363

PATIENT
  Age: 61 Year
  Sex: Female

DRUGS (9)
  1. TELAVIC (TELAPREVIR) [Suspect]
     Indication: HEPATITIS C
     Route: 048
     Dates: start: 20120221, end: 20120229
  2. PEGINTERFERON ALFA-2A [Concomitant]
     Indication: HEPATITIS C
     Route: 051
     Dates: start: 20120221
  3. EPINASTINE HYDROCHLORIDE [Concomitant]
     Route: 048
     Dates: start: 20120221
  4. RIBAVIRIN [Concomitant]
     Route: 048
     Dates: start: 20120302
  5. CANDESARTAN CILEXETIL [Concomitant]
     Route: 048
     Dates: start: 20120221
  6. RIBAVIRIN [Concomitant]
     Indication: HEPATITIS C
     Route: 048
     Dates: start: 20120221, end: 20120301
  7. FAMOSTAGINE D [Concomitant]
     Route: 048
     Dates: start: 20120207
  8. TELAVIC (TELAPREVIR) [Suspect]
     Route: 048
     Dates: start: 20120301
  9. GASMOTIN [Concomitant]
     Route: 048
     Dates: start: 20120221

REACTIONS (3)
  - DRUG ERUPTION [None]
  - ANAEMIA [None]
  - VOMITING [None]
